FAERS Safety Report 16956898 (Version 1)
Quarter: 2019Q4

REPORT INFORMATION
  Report Type: Spontaneous
  Country: US (occurrence: US)
  Receive Date: 20191023
  Receipt Date: 20191023
  Transmission Date: 20200122
  Serious: Yes (Life-Threatening, Hospitalization, Disabling)
  Sender: FDA-Public Use
  Company Number: None

PATIENT
  Age: 71 Year
  Sex: Male
  Weight: 76.5 kg

DRUGS (11)
  1. OMEGA 3 [Concomitant]
     Active Substance: OMEGA-3 FATTY ACIDS
  2. ZANTAC [Suspect]
     Active Substance: RANITIDINE HYDROCHLORIDE
     Indication: GASTROOESOPHAGEAL REFLUX DISEASE
     Route: 048
  3. TRAVATAN Z [Concomitant]
     Active Substance: TRAVOPROST
  4. GARLIC. [Concomitant]
     Active Substance: GARLIC
  5. VITAMIN D3 [Concomitant]
     Active Substance: CHOLECALCIFEROL
  6. RANITIDINE. [Suspect]
     Active Substance: RANITIDINE
  7. LISINIRIL [Concomitant]
  8. TIMOPTIC [Concomitant]
     Active Substance: TIMOLOL MALEATE
  9. RHOPRESSA [Concomitant]
     Active Substance: NETARSUDIL MESYLATE
  10. ATORVASTATIN [Concomitant]
     Active Substance: ATORVASTATIN
  11. B VITS [Concomitant]

REACTIONS (1)
  - Bladder cancer [None]
